FAERS Safety Report 19642504 (Version 1)
Quarter: 2021Q3

REPORT INFORMATION
  Report Type: Spontaneous
  Country: TW (occurrence: TW)
  Receive Date: 20210731
  Receipt Date: 20210731
  Transmission Date: 20211014
  Serious: Yes (Other)
  Sender: FDA-Public Use
  Company Number: TW-ACCORD-232898

PATIENT
  Age: 71 Year
  Sex: Male

DRUGS (3)
  1. GEMCITABINE/GEMCITABINE HYDROCHLORIDE [Suspect]
     Active Substance: GEMCITABINE\GEMCITABINE HYDROCHLORIDE
     Indication: MIXED HEPATOCELLULAR CHOLANGIOCARCINOMA
     Dates: start: 201909, end: 201912
  2. CISPLATIN. [Suspect]
     Active Substance: CISPLATIN
     Indication: MIXED HEPATOCELLULAR CHOLANGIOCARCINOMA
     Dates: start: 201909, end: 201912
  3. PACLITAXEL. [Suspect]
     Active Substance: PACLITAXEL
     Indication: MIXED HEPATOCELLULAR CHOLANGIOCARCINOMA
     Dates: start: 201909, end: 201912

REACTIONS (6)
  - Neutropenia [Unknown]
  - Neuropathy peripheral [Unknown]
  - Nausea [Unknown]
  - Drug intolerance [Unknown]
  - Vomiting [Unknown]
  - Fatigue [Unknown]

NARRATIVE: CASE EVENT DATE: 2019
